FAERS Safety Report 12089109 (Version 1)
Quarter: 2016Q1

REPORT INFORMATION
  Report Type: Spontaneous
  Country: FR (occurrence: FR)
  Receive Date: 20160218
  Receipt Date: 20160218
  Transmission Date: 20160526
  Serious: Yes (Other)
  Sender: FDA-Public Use
  Company Number: PHHY2016FR018399

PATIENT
  Age: 39 Year
  Sex: Male

DRUGS (3)
  1. ASPIRIN                            /00346701/ [Concomitant]
     Active Substance: ASCORBIC ACID\ASPIRIN
     Indication: VENTRICULAR TACHYCARDIA
     Dosage: 250 MG, UNK
     Route: 065
  2. TICAGRELOR [Suspect]
     Active Substance: TICAGRELOR
     Indication: VENTRICULAR TACHYCARDIA
     Dosage: 180 MG, UNK
     Route: 065
  3. ATENOLOL. [Suspect]
     Active Substance: ATENOLOL
     Indication: VENTRICULAR TACHYCARDIA
     Dosage: 25 MG, PER OS
     Route: 065

REACTIONS (1)
  - Sinus node dysfunction [Recovered/Resolved]
